FAERS Safety Report 8868516 (Version 1)
Quarter: 2012Q4

REPORT INFORMATION
  Report Type: 
  Country: US (occurrence: US)
  Receive Date: 20121025
  Receipt Date: 20121025
  Transmission Date: 20130627
  Serious: No
  Sender: FDA-Public Use
  Company Number: US-AMGEN-USASP2012019894

PATIENT
  Sex: Female

DRUGS (8)
  1. ENBREL [Suspect]
     Indication: PRODUCT USED FOR UNKNOWN INDICATION
     Dosage: 50 mg, qwk
     Route: 058
  2. FOLIC ACID [Concomitant]
  3. ZOLOFT [Concomitant]
     Dosage: 25 mg, UNK
  4. PLAVIX [Concomitant]
     Dosage: 75 mg, UNK
  5. NIFEDIPINE [Concomitant]
     Dosage: 60 mg, UNK
  6. WARFARIN [Concomitant]
     Dosage: 2.5 mg, UNK
  7. VITAMIN B12                        /00056201/ [Concomitant]
     Dosage: 100 mug, UNK
  8. MULTIVITAMIN                       /00097801/ [Concomitant]

REACTIONS (1)
  - Injection site bruising [Unknown]
